FAERS Safety Report 18664785 (Version 1)
Quarter: 2020Q4

REPORT INFORMATION
  Report Type: Report from Study
  Country: US (occurrence: US)
  Receive Date: 20201225
  Receipt Date: 20201225
  Transmission Date: 20210114
  Serious: Yes (Hospitalization)
  Sender: FDA-Public Use
  Company Number: US-BAUSCH-BL-2020-038312

PATIENT
  Age: 64 Year
  Sex: Female

DRUGS (1)
  1. XIFAXAN [Suspect]
     Active Substance: RIFAXIMIN
     Indication: HEPATIC CIRRHOSIS
     Route: 048
     Dates: start: 202010

REACTIONS (7)
  - Thoracic vertebral fracture [Recovering/Resolving]
  - Asthenia [Recovering/Resolving]
  - Back injury [Recovering/Resolving]
  - Vomiting [Recovering/Resolving]
  - Spinal cord injury thoracic [Recovering/Resolving]
  - Gallbladder disorder [Recovering/Resolving]
  - Illness [Recovering/Resolving]

NARRATIVE: CASE EVENT DATE: 2020
